FAERS Safety Report 10269676 (Version 1)
Quarter: 2014Q2

REPORT INFORMATION
  Report Type: Spontaneous
  Country: US (occurrence: None)
  Receive Date: 20140609
  Receipt Date: 20140609
  Transmission Date: 20141212
  Serious: Yes (Other)
  Sender: FDA-Public Use
  Company Number: A14-038 B

PATIENT
  Age: 14 Year
  Sex: Male
  Weight: 59 kg

DRUGS (4)
  1. ALLERGENIC EXTRACT [Suspect]
     Dosage: .20CC, MAINT, INJECTION
     Dates: start: 20000310
  2. ZYRTEC [Concomitant]
  3. SINGULAIR [Concomitant]
  4. SYMBICORT [Concomitant]

REACTIONS (3)
  - Cough [None]
  - Urticaria [None]
  - Dyspnoea [None]
